FAERS Safety Report 21611337 (Version 1)
Quarter: 2022Q4

REPORT INFORMATION
  Report Type: Spontaneous
  Country: IN (occurrence: IN)
  Receive Date: 20221117
  Receipt Date: 20221117
  Transmission Date: 20230113
  Serious: Yes (Other)
  Sender: FDA-Public Use
  Company Number: IN-PFIZER INC-PV202200100716

PATIENT
  Sex: Male

DRUGS (1)
  1. AVIBACTAM SODIUM\CEFTAZIDIME [Suspect]
     Active Substance: AVIBACTAM SODIUM\CEFTAZIDIME
     Indication: Product used for unknown indication
     Dosage: UNK
     Dates: start: 20221021, end: 20221104

REACTIONS (12)
  - Pyrexia [Recovered/Resolved]
  - Osteomyelitis acute [Unknown]
  - Tremor [Unknown]
  - Asthenia [Unknown]
  - Platelet count decreased [Unknown]
  - C-reactive protein increased [Unknown]
  - Aspartate aminotransferase abnormal [Unknown]
  - White blood cell count decreased [Unknown]
  - Red blood cell sedimentation rate increased [Unknown]
  - Rash [Recovered/Resolved]
  - Vomiting [Recovered/Resolved]
  - Gamma-glutamyltransferase increased [Unknown]

NARRATIVE: CASE EVENT DATE: 20220101
